FAERS Safety Report 5473173-X (Version None)
Quarter: 2007Q4

REPORT INFORMATION
  Report Type: 
  Country: None (occurrence: None)
  Receive Date: 20071001
  Receipt Date: 20070925
  Transmission Date: 20080405
  Serious: No
  Sender: FDA-Public Use
  Company Number: JP-MERCK-0708USA05563

PATIENT
  Age: 31 Year
  Sex: Male
  Weight: 63 kg

DRUGS (2)
  1. PROPECIA [Suspect]
     Indication: MALE PATTERN BALDNESS
     Route: 048
     Dates: start: 20070320, end: 20070720
  2. ZEFNART [Concomitant]
     Indication: TINEA INFECTION
     Route: 061
     Dates: start: 20070323, end: 20070830

REACTIONS (1)
  - HEPATIC FUNCTION ABNORMAL [None]
